FAERS Safety Report 21621141 (Version 4)
Quarter: 2022Q4

REPORT INFORMATION
  Report Type: Spontaneous
  Country: IT (occurrence: IT)
  Receive Date: 20221121
  Receipt Date: 20221220
  Transmission Date: 20230112
  Serious: Yes (Other)
  Sender: FDA-Public Use
  Company Number: IT-002147023-NVSC2022IT211246

PATIENT
  Age: 1 Month
  Sex: Male

DRUGS (8)
  1. AZACITIDINE [Suspect]
     Active Substance: AZACITIDINE
     Indication: Acute lymphocytic leukaemia recurrent
     Dosage: 75 MG, Q21D, CYCLIC (21 DAY CYCLE FOR 4 CYCLES)
     Route: 065
  2. AZACITIDINE [Suspect]
     Active Substance: AZACITIDINE
     Indication: Acute lymphocytic leukaemia
     Dosage: 75 MG/M2,Q21D, CYCLIC(21 DAY CYCLE FOR 4 CYCLES)
     Route: 065
  3. AZACITIDINE [Suspect]
     Active Substance: AZACITIDINE
     Indication: B precursor type acute leukaemia
     Dosage: 55 MG/M2, Q21D (EVERY 21 DAYS FOR 4 CYCLES)
     Route: 065
  4. AZACITIDINE [Suspect]
     Active Substance: AZACITIDINE
     Dosage: 40 MG/M2,Q21D, (3 COURSES EVERY 21 DAYS)
     Route: 065
  5. AZACITIDINE [Suspect]
     Active Substance: AZACITIDINE
     Dosage: 55 MG/M2,Q21D CYCLIC (21 DAY CYCLE FOR 4 CYCLES)
     Route: 065
  6. PREDNISONE [Suspect]
     Active Substance: PREDNISONE
     Indication: Acute lymphocytic leukaemia
     Dosage: 1 MICROGRAM/SQ. METER (1 MG/M2 AT EACH CYCLE OF AZACITIDINE)
     Route: 065
  7. PREDNISONE [Concomitant]
     Active Substance: PREDNISONE
     Indication: Acute lymphocytic leukaemia recurrent
     Dosage: 1 MG/M2, CYCLIC
     Route: 065
  8. BLINATUMOMAB [Concomitant]
     Active Substance: BLINATUMOMAB
     Indication: B precursor type acute leukaemia
     Dosage: RECEIVED 2 CYCLES
     Route: 065

REACTIONS (6)
  - Pneumonia [Recovered/Resolved]
  - Cytopenia [Recovered/Resolved]
  - Off label use [Unknown]
  - Product use in unapproved indication [Recovered/Resolved]
  - Product use issue [Recovered/Resolved]
  - Intentional product use issue [Unknown]
